FAERS Safety Report 8322488-6 (Version None)
Quarter: 2012Q2

REPORT INFORMATION
  Report Type: 
  Country: None (occurrence: None)
  Receive Date: 20120426
  Receipt Date: 20120412
  Transmission Date: 20120825
  Serious: Yes (Hospitalization)
  Sender: FDA-Public Use
  Company Number: JPI-P-020767

PATIENT
  Age: 52 Year
  Sex: Female
  Weight: 97.977 kg

DRUGS (11)
  1. MOXIFLOXACIN [Suspect]
     Indication: EAR INFECTION
     Dosage: (UNKNOWN)
     Dates: start: 20120307, end: 20120307
  2. COBALAMIN [Concomitant]
  3. CALCIUM [Concomitant]
  4. URSODIOL [Concomitant]
  5. FIBER [Concomitant]
  6. MUPIROCIN (OINTMENT) [Concomitant]
  7. CALCIFEROL [Concomitant]
  8. XYREM [Suspect]
     Indication: SLEEP APNOEA SYNDROME
     Dosage: (UNKNOWN), ORAL 9 GM (4.5 GM, 2 IN 1 D), ORAL
     Route: 048
     Dates: start: 20060810
  9. XYREM [Suspect]
     Indication: SLEEP APNOEA SYNDROME
     Dosage: (UNKNOWN), ORAL 9 GM (4.5 GM, 2 IN 1 D), ORAL
     Route: 048
     Dates: end: 20120317
  10. BIOTIN [Concomitant]
  11. GLUCOSAMINE CHONDROITIN [Concomitant]

REACTIONS (2)
  - EAR INFECTION [None]
  - CLOSTRIDIUM DIFFICILE COLITIS [None]
